FAERS Safety Report 22058496 (Version 2)
Quarter: 2023Q1

REPORT INFORMATION
  Report Type: Report from Study
  Country: US (occurrence: US)
  Receive Date: 20230303
  Receipt Date: 20230307
  Transmission Date: 20230418
  Serious: Yes (Other)
  Sender: FDA-Public Use
  Company Number: US-BEH-2023156017

PATIENT
  Age: 40 Year
  Sex: Male

DRUGS (1)
  1. HIZENTRA [Suspect]
     Active Substance: HUMAN IMMUNOGLOBULIN G
     Indication: Dermatomyositis
     Dosage: UNK
     Route: 058

REACTIONS (17)
  - Meningitis aseptic [Unknown]
  - Anaphylactic reaction [Unknown]
  - Swelling face [Unknown]
  - Swollen tongue [Unknown]
  - Dysphagia [Unknown]
  - Chest discomfort [Unknown]
  - Feeling abnormal [Unknown]
  - Feeling abnormal [Unknown]
  - Pain in extremity [Unknown]
  - Arthralgia [Unknown]
  - Bone pain [Unknown]
  - Chills [Unknown]
  - Pyrexia [Unknown]
  - Headache [Unknown]
  - Nausea [Unknown]
  - No adverse event [Unknown]
  - Off label use [Unknown]
